FAERS Safety Report 5357409-1 (Version None)
Quarter: 2007Q2

REPORT INFORMATION
  Report Type: 
  Country: None (occurrence: None)
  Receive Date: 20070612
  Receipt Date: 20070529
  Transmission Date: 20071010
  Serious: Yes (Congenital Anomaly)
  Sender: FDA-Public Use
  Company Number: 156920ISR

PATIENT
  Sex: Female

DRUGS (2)
  1. SERTRALINE [Suspect]
     Indication: DEPRESSION
     Dosage: 100 MG, TRANSPLACENTAL
     Route: 064
     Dates: start: 20051101
  2. TRIFLUOPERAZINE HCL [Suspect]
     Indication: PSYCHOTIC DISORDER
     Dosage: 10 MG, TRANSPLACENTAL`
     Route: 064
     Dates: start: 20050801

REACTIONS (3)
  - CARDIAC SEPTAL DEFECT [None]
  - CONGENITAL ANOMALY [None]
  - DRUG EXPOSURE DURING PREGNANCY [None]
